FAERS Safety Report 8771798 (Version 2)
Quarter: 2015Q2

REPORT INFORMATION
  Report Type: Report from Study
  Country: US (occurrence: US)
  Receive Date: 20120905
  Receipt Date: 20150617
  Transmission Date: 20150821
  Serious: Yes (Death)
  Sender: FDA-Public Use
  Company Number: US-ROCHE-1113149

PATIENT
  Sex: Male
  Weight: 77 kg

DRUGS (4)
  1. TARCEVA [Suspect]
     Active Substance: ERLOTINIB HYDROCHLORIDE
     Indication: PRODUCT USED FOR UNKNOWN INDICATION
     Route: 065
     Dates: start: 200506
  2. NAVELBINE [Concomitant]
     Active Substance: VINORELBINE TARTRATE
     Route: 065
     Dates: start: 200508
  3. GEMZAR [Concomitant]
     Active Substance: GEMCITABINE HYDROCHLORIDE
     Route: 065
     Dates: start: 200508
  4. AVASTIN [Suspect]
     Active Substance: BEVACIZUMAB
     Indication: LUNG NEOPLASM MALIGNANT
     Route: 065
     Dates: start: 20050817

REACTIONS (4)
  - Malaise [Unknown]
  - Disease progression [Unknown]
  - Death [Fatal]
  - Off label use [Unknown]
